FAERS Safety Report 8806502 (Version 3)
Quarter: 2013Q2

REPORT INFORMATION
  Report Type: Spontaneous
  Country: US (occurrence: US)
  Receive Date: 20120925
  Receipt Date: 20130417
  Transmission Date: 20140414
  Serious: Yes (Hospitalization)
  Sender: FDA-Public Use
  Company Number: US-BAYER-2012-098098

PATIENT
  Age: 28 Year
  Sex: Female
  Weight: 106.12 kg

DRUGS (13)
  1. YAZ [Suspect]
  2. YASMIN [Suspect]
  3. OCELLA [Suspect]
  4. PRENATAL [Concomitant]
  5. VITAMIN C [Concomitant]
  6. CLINDAMYCIN [Concomitant]
  7. HYDROCODONE W/ACETAMINOPHEN [Concomitant]
  8. AMOXICILLIN [Concomitant]
  9. IBUPROFEN [Concomitant]
  10. MICRONOR [Concomitant]
  11. ZYRTEC [Concomitant]
  12. AFRIN [OXYMETAZOLINE] [Concomitant]
  13. NASAL STEROIDS [Concomitant]

REACTIONS (2)
  - Deep vein thrombosis [Recovering/Resolving]
  - Injury [None]
